FAERS Safety Report 4286562-6 (Version None)
Quarter: 2004Q1

REPORT INFORMATION
  Report Type: 
  Country: None (occurrence: None)
  Receive Date: 20040204
  Receipt Date: 20040122
  Transmission Date: 20041129
  Serious: Yes (Death)
  Sender: FDA-Public Use
  Company Number: JP-JNJFOC-20040104297

PATIENT
  Age: 76 Year
  Sex: Male

DRUGS (2)
  1. REMICADE [Suspect]
     Indication: RHEUMATOID ARTHRITIS
     Dosage: ,  IN 1 AS NECESSARY, INTRAVENOUS DRIP
     Route: 041
  2. RHEUMATREX [Suspect]
     Indication: DRUG USE FOR UNKNOWN INDICATION
     Dosage: 6 MG,  IN 1 WEEK,

REACTIONS (5)
  - BLOOD CREATININE INCREASED [None]
  - BONE MARROW DEPRESSION [None]
  - DRUG INTERACTION [None]
  - PYREXIA [None]
  - SEPSIS [None]
